FAERS Safety Report 4348109-5 (Version None)
Quarter: 2004Q1

REPORT INFORMATION
  Report Type: 
  Country: None (occurrence: None)
  Receive Date: 20040325
  Receipt Date: 20040209
  Transmission Date: 20041129
  Serious: No
  Sender: FDA-Public Use
  Company Number: USA040258942

PATIENT
  Age: 90 Year
  Sex: Female

DRUGS (1)
  1. FORTEO [Suspect]
     Dates: end: 20040205

REACTIONS (5)
  - ANXIETY [None]
  - DIZZINESS [None]
  - DYSPNOEA [None]
  - ILL-DEFINED DISORDER [None]
  - RASH [None]
